FAERS Safety Report 20070716 (Version 1)
Quarter: 2021Q4

REPORT INFORMATION
  Report Type: Spontaneous
  Country: US (occurrence: US)
  Receive Date: 20211115
  Receipt Date: 20211115
  Transmission Date: 20220303
  Serious: No
  Sender: FDA-Public Use
  Company Number: US-KYOWAKIRIN-2021BKK018897

PATIENT

DRUGS (2)
  1. CRYSVITA [Suspect]
     Active Substance: BUROSUMAB-TWZA
     Indication: Hereditary hypophosphataemic rickets
     Dosage: COMBINED STRENGTH OF 10MG AND 30 MG TO ACHIEVE 70 MG EVERY 4 WEEKS
     Route: 058
     Dates: start: 20180711
  2. CRYSVITA [Suspect]
     Active Substance: BUROSUMAB-TWZA
     Indication: Hereditary hypophosphataemic rickets
     Dosage: COMBINED STRENGTH OF 10MG AND 30 MG TO ACHIEVE 70 MG EVERY 4 WEEKS
     Route: 058
     Dates: start: 20180711

REACTIONS (3)
  - Musculoskeletal stiffness [Recovered/Resolved]
  - Pain in extremity [Recovered/Resolved]
  - Back pain [Recovered/Resolved]
